FAERS Safety Report 10749867 (Version 1)
Quarter: 2015Q1

REPORT INFORMATION
  Report Type: Spontaneous
  Country: JP (occurrence: JP)
  Receive Date: 20150129
  Receipt Date: 20150129
  Transmission Date: 20150721
  Serious: Yes (Death)
  Sender: FDA-Public Use
  Company Number: JP-INTERMUNE, INC.-201312IM004615

PATIENT
  Age: 75 Year
  Sex: Male

DRUGS (10)
  1. PIRESPA (PIRFENIDONE) [Suspect]
     Active Substance: PIRFENIDONE
     Indication: IDIOPATHIC PULMONARY FIBROSIS
     Dosage: 600 MG
     Route: 048
     Dates: start: 20131007, end: 201501
  2. MEDICON [Suspect]
     Active Substance: DEXTROMETHORPHAN HYDROBROMIDE
     Indication: IDIOPATHIC PULMONARY FIBROSIS
     Route: 048
     Dates: start: 20131007
  3. MEDICON [Suspect]
     Active Substance: DEXTROMETHORPHAN HYDROBROMIDE
     Route: 048
     Dates: start: 201311, end: 2014
  4. PREDONINE [Suspect]
     Active Substance: PREDNISOLONE\PREDNISOLONE ACETATE\PREDNISOLONE SODIUM SUCCINATE
     Indication: IDIOPATHIC PULMONARY FIBROSIS
     Route: 048
     Dates: end: 201501
  5. FLIVAS [Concomitant]
     Active Substance: NAFTOPIDIL
     Dosage: 25 MG
     Route: 048
     Dates: end: 201501
  6. KAZMARIN [Concomitant]
     Active Substance: DOXAZOSIN MESYLATE
     Dosage: 2 MG
     Dates: end: 201501
  7. FLUITRAN [Concomitant]
     Active Substance: TRICHLORMETHIAZIDE
     Dosage: 2 MG
     Route: 048
     Dates: end: 2014
  8. AMLODIN [Concomitant]
     Active Substance: AMLODIPINE BESYLATE
     Dosage: 10 MG
     Route: 048
     Dates: end: 201501
  9. PARIET [Concomitant]
     Active Substance: RABEPRAZOLE SODIUM
     Indication: GASTRITIS PROPHYLAXIS
     Route: 048
     Dates: end: 201501
  10. BAKTAR [Concomitant]
     Active Substance: SULFAMETHOXAZOLE\TRIMETHOPRIM
     Indication: INFECTION PROPHYLAXIS
     Route: 048
     Dates: end: 201501

REACTIONS (3)
  - Idiopathic pulmonary fibrosis [Fatal]
  - Glossitis [Not Recovered/Not Resolved]
  - Decreased appetite [Recovered/Resolved]

NARRATIVE: CASE EVENT DATE: 20131115
